FAERS Safety Report 12446395 (Version 1)
Quarter: 2016Q2

REPORT INFORMATION
  Report Type: Spontaneous
  Country: US (occurrence: None)
  Receive Date: 20160607
  Receipt Date: 20160607
  Transmission Date: 20160815
  Serious: Yes (Hospitalization)
  Sender: FDA-Public Use
  Company Number: None

PATIENT
  Age: 63 Year
  Sex: Female

DRUGS (13)
  1. FLECAINIDE [Concomitant]
     Active Substance: FLECAINIDE
  2. TRULICITY [Concomitant]
     Active Substance: DULAGLUTIDE
  3. LIPITOR [Concomitant]
     Active Substance: ATORVASTATIN CALCIUM
  4. MULTIVITAMIN [Concomitant]
     Active Substance: VITAMINS
  5. VITAMIN D3 [Concomitant]
     Active Substance: CHOLECALCIFEROL
  6. LEVAQUIN [Suspect]
     Active Substance: LEVOFLOXACIN
     Indication: BRONCHITIS
     Route: 048
     Dates: start: 20160422, end: 20160426
  7. XARELTO [Concomitant]
     Active Substance: RIVAROXABAN
  8. COQ 10 [Concomitant]
     Active Substance: UBIDECARENONE
  9. DIOVAN [Concomitant]
     Active Substance: VALSARTAN
  10. LEVAQUIN [Suspect]
     Active Substance: LEVOFLOXACIN
     Indication: SINUSITIS
     Route: 048
     Dates: start: 20160422, end: 20160426
  11. GLIMIPERIDE [Concomitant]
     Active Substance: GLIMEPIRIDE
  12. VITAMIN C [Concomitant]
     Active Substance: ASCORBIC ACID
  13. METFORMIN [Concomitant]
     Active Substance: METFORMIN HYDROCHLORIDE

REACTIONS (6)
  - Abasia [None]
  - Tendonitis [None]
  - Dysstasia [None]
  - Pain in extremity [None]
  - Tenosynovitis [None]
  - Cellulitis [None]

NARRATIVE: CASE EVENT DATE: 20160428
